FAERS Safety Report 25705903 (Version 1)
Quarter: 2025Q3

REPORT INFORMATION
  Report Type: Spontaneous
  Country: US (occurrence: None)
  Receive Date: 20250819
  Receipt Date: 20250819
  Transmission Date: 20251020
  Serious: Yes (Other)
  Sender: FDA-CTU
  Company Number: None

PATIENT
  Age: 76 Year
  Sex: Male
  Weight: 72.45 kg

DRUGS (1)
  1. PRIVIGEN [Suspect]
     Active Substance: HUMAN IMMUNOGLOBULIN G
     Indication: Chronic inflammatory demyelinating polyradiculoneuropathy
     Route: 042

REACTIONS (7)
  - Photophobia [None]
  - Dizziness [None]
  - Headache [None]
  - Balance disorder [None]
  - Disturbance in attention [None]
  - Myalgia [None]
  - Burning sensation [None]

NARRATIVE: CASE EVENT DATE: 20250819
